FAERS Safety Report 18374848 (Version 3)
Quarter: 2020Q4

REPORT INFORMATION
  Report Type: Spontaneous
  Country: IT (occurrence: IT)
  Receive Date: 20201013
  Receipt Date: 20201028
  Transmission Date: 20210114
  Serious: Yes (Death)
  Sender: FDA-Public Use
  Company Number: IT-TEVA-2020-IT-1837019

PATIENT
  Age: 77 Year
  Sex: Male
  Weight: 80 kg

DRUGS (14)
  1. FLUIMUCIL [Concomitant]
     Active Substance: ACETYLCYSTEINE
     Dosage: UNIT DOSE : 600 MG
  2. OMNIC [Concomitant]
     Active Substance: TAMSULOSIN HYDROCHLORIDE
     Dosage: UNIT DOSE : 0.4 MG
  3. BRONCOVALEAS [Concomitant]
     Active Substance: ALBUTEROL
  4. SIMVASTATIN. [Suspect]
     Active Substance: SIMVASTATIN
     Indication: MYOCARDIAL ISCHAEMIA
     Dosage: UNIT DOSE : 40 MG
     Route: 048
     Dates: end: 20200701
  5. DIGOXIN. [Concomitant]
     Active Substance: DIGOXIN
     Indication: CARDIAC FAILURE
     Dosage: 0.13 MG
     Route: 048
     Dates: start: 20200710, end: 20200713
  6. PIPERACILLINA/TAZOBACTAM [Concomitant]
     Active Substance: PIPERACILLIN SODIUM\TAZOBACTAM SODIUM
     Dates: start: 20200704, end: 20200714
  7. RIVAROXABAN [Concomitant]
     Active Substance: RIVAROXABAN
     Dosage: UNIT DOSE : 15 MG
     Dates: end: 20200713
  8. LEVOFLOXACIN. [Suspect]
     Active Substance: LEVOFLOXACIN
     Indication: PNEUMONITIS
     Dosage: 500 MG
     Route: 042
     Dates: start: 20200704, end: 20200712
  9. ABASAGLAR [Concomitant]
     Active Substance: INSULIN GLARGINE
     Dosage: UNIT DOSE : 6 IU
  10. ZYLORIC [Concomitant]
     Active Substance: ALLOPURINOL
     Dosage: UNIT DOSE : 150 MG
  11. QUARK [Concomitant]
     Active Substance: RAMIPRIL
     Dosage: UNIT DOSE : 1.25 MG
     Dates: end: 20200713
  12. CARDIOASPIRIN [Concomitant]
     Active Substance: ASPIRIN
     Dosage: UNIT DOSE : 100 MG
  13. PRONTINAL [Concomitant]
     Active Substance: BECLOMETHASONE DIPROPIONATE
  14. OMEPRAZOLE. [Concomitant]
     Active Substance: OMEPRAZOLE
     Dosage: UNIT DOSE : 20 MG

REACTIONS (2)
  - Rhabdomyolysis [Fatal]
  - Acute kidney injury [Fatal]

NARRATIVE: CASE EVENT DATE: 20200713
